FAERS Safety Report 8215272-5 (Version None)
Quarter: 2012Q1

REPORT INFORMATION
  Report Type: 
  Country: None (occurrence: None)
  Receive Date: 20120316
  Receipt Date: 20120312
  Transmission Date: 20120608
  Serious: Yes (Death, Other)
  Sender: FDA-Public Use
  Company Number: DE-PFIZER INC-2012064984

PATIENT
  Age: 59 Year
  Sex: Female

DRUGS (2)
  1. METAMIZOLE [Suspect]
  2. PIPERACILLIN AND TAZOBACTAM [Suspect]

REACTIONS (1)
  - TOXIC EPIDERMAL NECROLYSIS [None]
